FAERS Safety Report 8634633 (Version 23)
Quarter: 2014Q1

REPORT INFORMATION
  Report Type: Spontaneous
  Country: US (occurrence: US)
  Receive Date: 20120626
  Receipt Date: 20140108
  Transmission Date: 20141002
  Serious: Yes (Hospitalization, Other)
  Sender: FDA-Public Use
  Company Number: PHEH2006US015703

PATIENT
  Age: 51 Year
  Sex: Male
  Weight: 82.54 kg

DRUGS (28)
  1. AREDIA [Suspect]
     Indication: METASTASES TO BONE
     Dosage: 90 MG, QMO
     Route: 041
     Dates: start: 199906, end: 200407
  2. AREDIA [Suspect]
     Indication: HYPERCALCAEMIA
  3. AREDIA [Suspect]
     Indication: PLASMA CELL MYELOMA
  4. ZOMETA [Suspect]
     Indication: PLASMA CELL MYELOMA
     Dosage: 4 MG, QMO
     Route: 042
  5. VELCADE [Suspect]
     Indication: PLASMA CELL MYELOMA
  6. OXYIR [Concomitant]
     Dosage: 5 MG, PRN
  7. PRILOSEC [Concomitant]
     Dosage: 40 MG, QD
     Route: 048
  8. TYLENOL ARTHRITIS [Concomitant]
     Dosage: 1300 MG, QAM
  9. THALOMID [Concomitant]
     Dosage: 100 MG, QPM
     Dates: start: 2003, end: 2005
  10. COUMADIN ^DUPONT^ [Concomitant]
     Dosage: 1 MG, QD
  11. COUMADIN ^DUPONT^ [Concomitant]
     Dosage: 1 MG, QD
     Route: 048
  12. LASIX [Concomitant]
     Dosage: 40 MG, UNK
  13. DEXAMETHASONE [Concomitant]
     Dosage: 4 MG, 10 TABLETS EVERY TUESDAY
  14. DOCUSATE SODIUM [Concomitant]
     Dosage: 100 MG, UNK
  15. HUMALOG [Concomitant]
     Dosage: AS DIRECTED DURING STEROIDS
  16. MORPHINE SULFATE [Concomitant]
     Indication: PAIN
  17. BETA BLOCKING AGENTS [Concomitant]
     Indication: BLOOD PRESSURE MANAGEMENT
     Dosage: UNK UKN, UNK
     Dates: start: 200704
  18. NEURONTIN [Concomitant]
     Dosage: 600 MG, QD
  19. NEURONTIN [Concomitant]
     Dosage: 300 MG, QD
  20. MULTIVITAMINS [Concomitant]
     Dosage: UNK UKN, QD
  21. VITAMIN B6 [Concomitant]
     Dosage: 100 MG, QD
  22. IRON [Concomitant]
     Dosage: 65 MG, QD
  23. UROXATRAL [Concomitant]
     Dosage: 10 MG, QOD
  24. CEPHALEXIN [Concomitant]
     Dosage: 500 MG, QD
  25. INSULIN [Concomitant]
  26. OXYCODONE [Concomitant]
     Dosage: 5 MG, PRN
  27. ALEVE                              /00256202/ [Concomitant]
     Dosage: 220 MG, QD
  28. STEROIDS NOS [Concomitant]

REACTIONS (154)
  - Bacterial infection [Unknown]
  - Osteonecrosis of jaw [Unknown]
  - Osteomyelitis [Recovered/Resolved]
  - Injury [Unknown]
  - Pain [Unknown]
  - Emotional distress [Unknown]
  - Oral pain [Unknown]
  - Oedema mouth [Unknown]
  - Exposed bone in jaw [Unknown]
  - Mastication disorder [Unknown]
  - Pain in jaw [Recovered/Resolved]
  - Jaw disorder [Unknown]
  - Osteosclerosis [Unknown]
  - Oral discomfort [Unknown]
  - Purulent discharge [Unknown]
  - Primary sequestrum [Unknown]
  - Osteoradionecrosis [Unknown]
  - Dental fistula [Not Recovered/Not Resolved]
  - Paresis [Unknown]
  - Impaired healing [Unknown]
  - Hypoaesthesia oral [Unknown]
  - Biopsy [Unknown]
  - Actinomycosis [Unknown]
  - Staphylococcal infection [Unknown]
  - Pathological fracture [Unknown]
  - Osteitis [Unknown]
  - Infection [Unknown]
  - Cataract [Unknown]
  - Posterior capsule opacification [Unknown]
  - Visual acuity reduced [Unknown]
  - Vision blurred [Unknown]
  - Glare [Unknown]
  - Erythema [Unknown]
  - Paraesthesia [Unknown]
  - Osteoporosis [Unknown]
  - Anaemia [Unknown]
  - Type 2 diabetes mellitus [Unknown]
  - Hyperglycaemia [Unknown]
  - Lumbar vertebral fracture [Unknown]
  - Squamous cell carcinoma [Unknown]
  - Neuropathy peripheral [Unknown]
  - Polyneuropathy [Unknown]
  - Scleromalacia [Unknown]
  - Cerebrovascular accident [Unknown]
  - Intervertebral disc degeneration [Unknown]
  - Arthropathy [Unknown]
  - Intervertebral disc disorder [Unknown]
  - Osteonecrosis [Unknown]
  - Monoclonal gammopathy [Unknown]
  - Erectile dysfunction [Unknown]
  - Urethral stenosis [Unknown]
  - Testicular failure [Unknown]
  - Large intestine polyp [Unknown]
  - Lumbar radiculopathy [Unknown]
  - Dysphonia [Unknown]
  - Urinary tract infection [Unknown]
  - Sinusitis [Unknown]
  - Arteriosclerosis [Unknown]
  - Dermatitis [Unknown]
  - Cerebellar infarction [Unknown]
  - Carotid artery stenosis [Unknown]
  - Folliculitis [Unknown]
  - Sciatica [Unknown]
  - Toxic neuropathy [Unknown]
  - Restless legs syndrome [Unknown]
  - Cerebral thrombosis [Unknown]
  - Coronary artery disease [Unknown]
  - Osteoarthritis [Unknown]
  - Renal cyst [Unknown]
  - Myocardial infarction [Unknown]
  - Muscle spasms [Unknown]
  - Foreign body in eye [Unknown]
  - Hypoacusis [Unknown]
  - Gastrointestinal pain [Unknown]
  - Testicular pain [Unknown]
  - Urinary retention [Unknown]
  - Gait disturbance [Unknown]
  - Memory impairment [Unknown]
  - Brain injury [Unknown]
  - Spinal cord injury [Unknown]
  - Confusional state [Unknown]
  - Speech disorder [Unknown]
  - Benign prostatic hyperplasia [Unknown]
  - Tarsal tunnel syndrome [Unknown]
  - Spinal pain [Unknown]
  - Nocturia [Unknown]
  - Swelling [Unknown]
  - Intervertebral disc space narrowing [Unknown]
  - Exostosis [Unknown]
  - Neuritis [Unknown]
  - Headache [Unknown]
  - Neck pain [Unknown]
  - Blindness [Unknown]
  - Pneumonia [Unknown]
  - Bronchitis [Unknown]
  - Intervertebral disc protrusion [Unknown]
  - Facet joint syndrome [Unknown]
  - Spinal deformity [Unknown]
  - Kyphosis [Unknown]
  - Renal disorder [Unknown]
  - Spinal osteoarthritis [Unknown]
  - Joint effusion [Unknown]
  - Epidural lipomatosis [Unknown]
  - Cyst [Unknown]
  - Hiatus hernia [Unknown]
  - Bone cyst [Unknown]
  - Vertigo [Unknown]
  - Hypoaesthesia [Unknown]
  - Dizziness [Unknown]
  - Dyspepsia [Unknown]
  - Arthralgia [Unknown]
  - Blood cholesterol increased [Unknown]
  - Dyspnoea [Unknown]
  - Eustachian tube dysfunction [Unknown]
  - Anosmia [Unknown]
  - Arthritis [Unknown]
  - Paranasal sinus hypersecretion [Unknown]
  - Inflammation [Unknown]
  - Fatigue [Unknown]
  - Oropharyngeal pain [Unknown]
  - Productive cough [Unknown]
  - QRS axis abnormal [Unknown]
  - Urinary hesitation [Unknown]
  - Hypertensive nephropathy [Unknown]
  - Sleep apnoea syndrome [Unknown]
  - Tooth deposit [Unknown]
  - Dental plaque [Unknown]
  - Spinal compression fracture [Unknown]
  - Cerebral infarction [Unknown]
  - Trismus [Unknown]
  - Upper respiratory tract infection [Unknown]
  - Barotrauma [Unknown]
  - Metastatic neoplasm [Unknown]
  - Cholelithiasis [Unknown]
  - Spinal cord compression [Unknown]
  - Scar [Unknown]
  - Abdominal pain [Unknown]
  - Abdominal tenderness [Unknown]
  - Muscular weakness [Unknown]
  - Fall [Unknown]
  - Malignant melanoma [Unknown]
  - Second primary malignancy [Unknown]
  - Lower limb fracture [Unknown]
  - Ankle fracture [Unknown]
  - Urinary tract obstruction [Unknown]
  - Interstitial lung disease [Unknown]
  - Atelectasis [Unknown]
  - Pulmonary congestion [Unknown]
  - Pulmonary vascular disorder [Unknown]
  - Hypoxia [Unknown]
  - Ataxia [Unknown]
  - Spinal column stenosis [Unknown]
  - Flank pain [Unknown]
  - Bone neoplasm [Unknown]
